FAERS Safety Report 19629023 (Version 1)
Quarter: 2021Q3

REPORT INFORMATION
  Report Type: Spontaneous
  Country: US (occurrence: US)
  Receive Date: 20210728
  Receipt Date: 20210728
  Transmission Date: 20211014
  Serious: No
  Sender: FDA-Public Use
  Company Number: US-PFIZER INC-2021581053

PATIENT
  Age: 65 Year
  Sex: Female

DRUGS (1)
  1. IBRANCE [Suspect]
     Active Substance: PALBOCICLIB
     Indication: BREAST CANCER FEMALE
     Dosage: 125 MG, 1X/DAY(QD X21D 7DAY OFF)
     Dates: start: 20210219

REACTIONS (4)
  - Dry skin [Unknown]
  - Fatigue [Unknown]
  - Alopecia [Unknown]
  - Constipation [Unknown]
